FAERS Safety Report 18174329 (Version 1)
Quarter: 2020Q3

REPORT INFORMATION
  Report Type: Spontaneous
  Country: DE (occurrence: DE)
  Receive Date: 20200820
  Receipt Date: 20200820
  Transmission Date: 20201103
  Serious: Yes (Other)
  Sender: FDA-Public Use
  Company Number: DE-TEVA-2020-DE-1813660

PATIENT
  Age: 56 Year
  Sex: Female

DRUGS (1)
  1. CLINDAMYCIN?RATIOPHARM 600 MG/4 ML INJEKTIONSLOESUNG I.V. [Suspect]
     Active Substance: CLINDAMYCIN
     Dosage: 1 INJECTION ON WEDNESDAY EVENING(AROUND 8 PM) AND THE NEXT INJECTION 7 A.M. ON THURSDAY UNDILUTED AS
     Route: 040
     Dates: start: 20200805, end: 20200806

REACTIONS (3)
  - Tachycardia [Unknown]
  - Injection site thrombosis [Unknown]
  - Incorrect route of product administration [Unknown]

NARRATIVE: CASE EVENT DATE: 202008
